FAERS Safety Report 9107589 (Version 2)
Quarter: 2013Q2

REPORT INFORMATION
  Report Type: Report from Study
  Country: HU (occurrence: HU)
  Receive Date: 20130221
  Receipt Date: 20130422
  Transmission Date: 20140414
  Serious: Yes (Other)
  Sender: FDA-Public Use
  Company Number: PHHY2013HU015824

PATIENT
  Age: 50 Year
  Sex: Female

DRUGS (1)
  1. FEMARA [Suspect]
     Indication: BREAST CANCER
     Dosage: 2.5 MG, UNK
     Route: 048
     Dates: start: 200710

REACTIONS (5)
  - Metastases to bone [Unknown]
  - Metastases to liver [Unknown]
  - General physical health deterioration [Unknown]
  - Anaemia [Unknown]
  - Dizziness [Unknown]
